FAERS Safety Report 5412685-1 (Version None)
Quarter: 2007Q3

REPORT INFORMATION
  Report Type: 
  Country: None (occurrence: None)
  Receive Date: 20070813
  Receipt Date: 20070802
  Transmission Date: 20080115
  Serious: Yes (Disabling, Other)
  Sender: FDA-Public Use
  Company Number: RU-SHR-RU-2007-028545

PATIENT
  Age: 58 Year
  Sex: Male

DRUGS (1)
  1. CAMPATH [Suspect]
     Indication: MANTLE CELL LYMPHOMA
     Dosage: 30 MG, 3X/WEEK
     Route: 058
     Dates: start: 20061025, end: 20061215

REACTIONS (2)
  - ACUTE RESPIRATORY FAILURE [None]
  - ASTHENIA [None]
